FAERS Safety Report 8704668 (Version 2)
Quarter: 2012Q4

REPORT INFORMATION
  Report Type: 
  Country: US (occurrence: US)
  Receive Date: 20120803
  Receipt Date: 20120904
  Transmission Date: 20130627
  Serious: Yes (Hospitalization)
  Sender: FDA-Public Use
  Company Number: US-ACTELION-A-US2012-68032

PATIENT
  Age: 59 Year
  Sex: Male

DRUGS (3)
  1. VELETRI [Suspect]
     Indication: PULMONARY ARTERIAL HYPERTENSION
     Dosage: 12 ng/kg, per min
     Route: 042
     Dates: start: 20120220
  2. SPIRONOLACTONE [Concomitant]
  3. FUROSEMIDE [Concomitant]

REACTIONS (10)
  - Renal injury [Unknown]
  - Renal disorder [Unknown]
  - Ammonia abnormal [Unknown]
  - Blood sodium abnormal [Unknown]
  - Enterobacter bacteraemia [Recovering/Resolving]
  - Device related infection [Recovering/Resolving]
  - Chills [Unknown]
  - Failure to thrive [Unknown]
  - Dysphagia [Unknown]
  - Asthenia [Unknown]
